FAERS Safety Report 6996733-3 (Version None)
Quarter: 2010Q3

REPORT INFORMATION
  Report Type: 
  Country: None (occurrence: None)
  Receive Date: 20100918
  Receipt Date: 20091007
  Transmission Date: 20110219
  Serious: No
  Sender: FDA-Public Use
  Company Number: US-WYE-H09940609

PATIENT
  Age: 53 Year
  Sex: Female

DRUGS (3)
  1. PREMPRO [Suspect]
     Indication: IRRITABILITY
     Dosage: 0.625/2.5MG IN THE AM
     Route: 048
     Dates: start: 20090301
  2. ASCORBIC ACID [Suspect]
     Dosage: UNKNOWN
     Route: 065
  3. HYDROCHLOROTHIAZIDE [Suspect]
     Indication: HYPERTENSION
     Route: 048
     Dates: start: 20060101

REACTIONS (2)
  - GRANULOMA ANNULARE [None]
  - PRURITUS GENERALISED [None]
